FAERS Safety Report 20995827 (Version 1)
Quarter: 2022Q2

REPORT INFORMATION
  Report Type: Spontaneous
  Country: US (occurrence: US)
  Receive Date: 20220623
  Receipt Date: 20220623
  Transmission Date: 20220721
  Serious: Yes (Other)
  Sender: FDA-Public Use
  Company Number: US-MLMSERVICE-20220608-3602957-1

PATIENT
  Sex: Female

DRUGS (3)
  1. PAROXETINE [Suspect]
     Active Substance: PAROXETINE
     Indication: Product used for unknown indication
     Dosage: UNK
     Route: 065
     Dates: start: 2013, end: 201310
  2. LITHIUM [Concomitant]
     Active Substance: LITHIUM
     Indication: Neuropsychiatric symptoms
     Dosage: UNK
     Route: 065
     Dates: start: 2013
  3. LAMOTRIGINE [Concomitant]
     Active Substance: LAMOTRIGINE
     Indication: Cluster headache
     Dosage: UNK
     Route: 065
     Dates: start: 201301

REACTIONS (5)
  - Confusional state [Recovered/Resolved]
  - Agitation [Recovered/Resolved]
  - Aggression [Recovered/Resolved]
  - Electrocardiogram QT prolonged [Unknown]
  - Psychiatric decompensation [Recovered/Resolved]

NARRATIVE: CASE EVENT DATE: 20130101
